FAERS Safety Report 4595021-2 (Version None)
Quarter: 2005Q1

REPORT INFORMATION
  Report Type: 
  Country: None (occurrence: None)
  Receive Date: 20050223
  Receipt Date: 20050210
  Transmission Date: 20050727
  Serious: Yes (Hospitalization, Other)
  Sender: FDA-Public Use
  Company Number: 2005028624

PATIENT
  Age: 67 Year
  Sex: Female
  Weight: 72.5755 kg

DRUGS (8)
  1. NEURONTIN [Suspect]
     Indication: BACK PAIN
     Dosage: 1200 MG (60 MG, 2 IN 1 D), ORAL
     Route: 048
     Dates: start: 20020101
  2. VICODIN [Concomitant]
  3. CYCLOBENZAPRINE HYDROCHLORIDE [Concomitant]
  4. PAROXETINE HYDROCHLORIDE [Concomitant]
  5. CLONAZEPAM [Concomitant]
  6. LANSOPRAZOLE [Concomitant]
  7. LEVOTHYROXINE SODIUM [Concomitant]
  8. CELECOXIB [Concomitant]

REACTIONS (5)
  - HYPOTONIA [None]
  - PAIN [None]
  - SEDATION [None]
  - SURGERY [None]
  - TREATMENT NONCOMPLIANCE [None]
